FAERS Safety Report 16412138 (Version 2)
Quarter: 2019Q3

REPORT INFORMATION
  Report Type: Spontaneous
  Country: US (occurrence: US)
  Receive Date: 20190610
  Receipt Date: 20190827
  Transmission Date: 20191004
  Serious: Yes (Death, Hospitalization, Other)
  Sender: FDA-Public Use
  Company Number: US-009507513-1906USA003356

PATIENT
  Age: 72 Year
  Sex: Male

DRUGS (4)
  1. TAXOL [Suspect]
     Active Substance: PACLITAXEL
     Dosage: UNK
     Dates: start: 201810
  2. KEYTRUDA [Suspect]
     Active Substance: PEMBROLIZUMAB
     Indication: LUNG NEOPLASM MALIGNANT
     Dosage: 200MG
     Route: 042
     Dates: start: 20181219, end: 20190403
  3. ABRAXANE [Suspect]
     Active Substance: PACLITAXEL
     Dosage: UNK
  4. CARBOPLATIN. [Suspect]
     Active Substance: CARBOPLATIN
     Dosage: UNK
     Dates: start: 201810, end: 20190130

REACTIONS (3)
  - Dizziness [Unknown]
  - Respiratory failure [Unknown]
  - Oncologic complication [Fatal]

NARRATIVE: CASE EVENT DATE: 201904
